FAERS Safety Report 13002147 (Version 1)
Quarter: 2016Q4

REPORT INFORMATION
  Report Type: Spontaneous
  Country: IE (occurrence: IE)
  Receive Date: 20161206
  Receipt Date: 20161206
  Transmission Date: 20170207
  Serious: Yes (Hospitalization)
  Sender: FDA-Public Use
  Company Number: IE-JNJFOC-20161204197

PATIENT
  Age: 41 Year
  Sex: Male

DRUGS (5)
  1. KEMADRIN [Concomitant]
     Active Substance: PROCYCLIDINE HYDROCHLORIDE
     Route: 050
  2. STELARA [Suspect]
     Active Substance: USTEKINUMAB
     Indication: PRODUCT USED FOR UNKNOWN INDICATION
     Route: 058
     Dates: start: 20160215
  3. ATIVAN [Concomitant]
     Active Substance: LORAZEPAM
     Route: 050
  4. ZOPICLONE [Concomitant]
     Active Substance: ZOPICLONE
     Route: 050
  5. RISPERIDONE. [Concomitant]
     Active Substance: RISPERIDONE
     Route: 050

REACTIONS (1)
  - Psychiatric evaluation [Unknown]

NARRATIVE: CASE EVENT DATE: 20161201
